FAERS Safety Report 15167869 (Version 1)
Quarter: 2018Q3

REPORT INFORMATION
  Report Type: Spontaneous
  Country: US (occurrence: US)
  Receive Date: 20180719
  Receipt Date: 20180719
  Transmission Date: 20181010
  Serious: Yes (Death, Hospitalization, Other)
  Sender: FDA-Public Use
  Company Number: US-SUNOVION-2018SUN002854

PATIENT
  Age: 61 Year
  Sex: Male

DRUGS (6)
  1. LATUDA [Suspect]
     Active Substance: LURASIDONE HYDROCHLORIDE
     Indication: BIPOLAR DISORDER
     Dosage: UNK
     Route: 048
  2. TORSEMIDE. [Concomitant]
     Active Substance: TORSEMIDE
  3. LISINOPRIL. [Concomitant]
     Active Substance: LISINOPRIL
  4. METOPROLOL TARTRATE. [Concomitant]
     Active Substance: METOPROLOL TARTRATE
  5. ATORVASTATIN [Concomitant]
     Active Substance: ATORVASTATIN
  6. APIXABAN [Concomitant]
     Active Substance: APIXABAN

REACTIONS (15)
  - Dysmetria [Unknown]
  - Tearfulness [Unknown]
  - Frontotemporal dementia [Unknown]
  - Atrial flutter [Unknown]
  - Action tremor [Unknown]
  - Memory impairment [Unknown]
  - Affect lability [Unknown]
  - Pressure of speech [Unknown]
  - Death [Fatal]
  - Mania [Unknown]
  - Oedema peripheral [Unknown]
  - Tachyphrenia [Unknown]
  - Agitation [Unknown]
  - Cerebrovascular accident [Unknown]
  - Belligerence [Unknown]
